FAERS Safety Report 19388878 (Version 2)
Quarter: 2021Q3

REPORT INFORMATION
  Report Type: Spontaneous
  Country: US (occurrence: US)
  Receive Date: 20210607
  Receipt Date: 20210924
  Transmission Date: 20211014
  Serious: Yes (Life-Threatening, Hospitalization, Other)
  Sender: FDA-Public Use
  Company Number: US-VALIDUS PHARMACEUTICALS LLC-US-2021VAL001230

PATIENT
  Sex: Female

DRUGS (2)
  1. CEFOTAXIME SODIUM [Suspect]
     Active Substance: CEFOTAXIME SODIUM
     Indication: PYELONEPHRITIS
     Dosage: UNK
     Route: 065
  2. MEROPENEM. [Suspect]
     Active Substance: MEROPENEM
     Indication: PYELONEPHRITIS
     Dosage: POWDER AND SOLVENT FOR SOLUTION FOR INFUSION
     Route: 065

REACTIONS (7)
  - Tachycardia [Recovering/Resolving]
  - Septic shock [Recovering/Resolving]
  - Rash [Recovering/Resolving]
  - Cytokine increased [Recovering/Resolving]
  - Dyspnoea [Recovering/Resolving]
  - Jarisch-Herxheimer reaction [Recovering/Resolving]
  - Hypotension [Recovering/Resolving]
